FAERS Safety Report 5625790-1 (Version None)
Quarter: 2008Q1

REPORT INFORMATION
  Report Type: 
  Country: None (occurrence: None)
  Receive Date: 20080211
  Receipt Date: 20080131
  Transmission Date: 20080703
  Serious: Yes (Other)
  Sender: FDA-Public Use
  Company Number: 2008AP000256

PATIENT
  Age: 45 Year
  Sex: Male

DRUGS (7)
  1. PAROXETINE HCL [Suspect]
     Dosage: 30 MG; QD PO, 20 MG; PO; QD, 30 MG; PO; QD, PO, PO
     Route: 048
     Dates: end: 20031215
  2. PAROXETINE HCL [Suspect]
     Dosage: 30 MG; QD PO, 20 MG; PO; QD, 30 MG; PO; QD, PO, PO
     Route: 048
     Dates: start: 19980514
  3. PAROXETINE HCL [Suspect]
     Dosage: 30 MG; QD PO, 20 MG; PO; QD, 30 MG; PO; QD, PO, PO
     Route: 048
     Dates: start: 19981001
  4. PAROXETINE HCL [Suspect]
     Dosage: 30 MG; QD PO, 20 MG; PO; QD, 30 MG; PO; QD, PO, PO
     Route: 048
     Dates: start: 20050701
  5. PAROXETINE HCL [Suspect]
     Dosage: 30 MG; QD PO, 20 MG; PO; QD, 30 MG; PO; QD, PO, PO
     Route: 048
     Dates: start: 20050701
  6. THIORIDAZINE HCL [Concomitant]
  7. DIAZEPAM [Concomitant]

REACTIONS (13)
  - AGGRESSION [None]
  - CONFUSIONAL STATE [None]
  - DIARRHOEA [None]
  - DISORIENTATION [None]
  - DIZZINESS [None]
  - MALAISE [None]
  - MOOD ALTERED [None]
  - MOOD SWINGS [None]
  - NIGHTMARE [None]
  - PARAESTHESIA [None]
  - SUICIDAL BEHAVIOUR [None]
  - VERTIGO [None]
  - WITHDRAWAL SYNDROME [None]
